FAERS Safety Report 8163624-4 (Version None)
Quarter: 2012Q1

REPORT INFORMATION
  Report Type: 
  Country: None (occurrence: None)
  Receive Date: 20120224
  Receipt Date: 20120222
  Transmission Date: 20120608
  Serious: Yes (Hospitalization)
  Sender: FDA-Public Use
  Company Number: IT-PFIZER INC-2012031378

PATIENT
  Age: 67 Year
  Sex: Female

DRUGS (11)
  1. ZOLOFT [Suspect]
     Indication: DEPRESSION
     Dosage: 1 UNIT DOSE DAILY
     Route: 048
     Dates: start: 20110201, end: 20110711
  2. PRAMIPEXOLE DIHYDROCHLORIDE [Suspect]
     Indication: RESTLESS LEGS SYNDROME
     Dosage: 3 UNITS DOSE DAILY
     Route: 048
     Dates: start: 20070429, end: 20110716
  3. FUROSEMIDE [Concomitant]
     Dosage: UNK
  4. NALOXONE HCL [Suspect]
     Dosage: 1 UNIT DOSE DAILY
     Route: 048
     Dates: start: 20110201, end: 20110711
  5. LEVOTHYROXINE SODIUM [Concomitant]
     Indication: HYPOTHYROIDISM
     Dosage: UNK
  6. NEBIVOLOL HCL [Concomitant]
     Dosage: UNK
  7. TOPAMAX [Suspect]
     Dosage: 1 UNIT DOSE DAILY
     Route: 048
     Dates: start: 20110201, end: 20110711
  8. NALOXONE/OXYCODONE [Suspect]
     Indication: RADICULOPATHY
     Dosage: 2 UNITS DOSE DAILY
     Route: 048
     Dates: start: 20110201, end: 20110711
  9. CLONAZEPAM [Suspect]
     Dosage: 15 DROPS DAILY
     Route: 048
     Dates: start: 20060117, end: 20110711
  10. WARFARIN SODIUM [Concomitant]
     Indication: ATRIAL FIBRILLATION
     Dosage: UNK
  11. ESOMEPRAZOLE MAGNESIUM [Concomitant]
     Dosage: UNK

REACTIONS (3)
  - BRADYKINESIA [None]
  - CONFUSIONAL STATE [None]
  - BRADYPHRENIA [None]
